FAERS Safety Report 6720489-2 (Version None)
Quarter: 2010Q2

REPORT INFORMATION
  Report Type: 
  Country: None (occurrence: None)
  Receive Date: 20100511
  Receipt Date: 20100427
  Transmission Date: 20101027
  Serious: Yes (Hospitalization)
  Sender: FDA-Public Use
  Company Number: JP-AMGEN-US392565

PATIENT
  Sex: Female
  Weight: 45 kg

DRUGS (8)
  1. ENBREL [Suspect]
     Indication: RHEUMATOID ARTHRITIS
     Route: 058
     Dates: start: 20080619, end: 20091030
  2. TAMIFLU [Suspect]
     Indication: INFLUENZA
     Route: 048
     Dates: start: 20091029, end: 20091102
  3. FAMOTIDINE [Concomitant]
     Indication: GASTRITIS
     Route: 048
     Dates: start: 19970725
  4. PROGRAF [Concomitant]
     Indication: RHEUMATOID ARTHRITIS
     Route: 048
     Dates: start: 20050706
  5. VOLTAREN [Concomitant]
     Indication: RHEUMATOID ARTHRITIS
     Route: 048
     Dates: start: 19951006
  6. METALCAPTASE [Concomitant]
     Indication: RHEUMATOID ARTHRITIS
     Route: 048
     Dates: start: 19970725
  7. SOLON [Concomitant]
     Indication: GASTRITIS
     Route: 048
     Dates: start: 20050829
  8. MAGNESIUM OXIDE [Concomitant]
     Indication: GASTRITIS
     Route: 048
     Dates: start: 20080724

REACTIONS (5)
  - DEVICE RELATED INFECTION [None]
  - INFLUENZA [None]
  - KNEE ARTHROPLASTY [None]
  - PARONYCHIA [None]
  - STAPHYLOCOCCAL INFECTION [None]
